FAERS Safety Report 9579572 (Version 2)
Quarter: 2013Q4

REPORT INFORMATION
  Report Type: Spontaneous
  Country: US (occurrence: US)
  Receive Date: 20131001
  Receipt Date: 20131001
  Transmission Date: 20140711
  Serious: No
  Sender: FDA-Public Use
  Company Number: US-AMGEN-USASP2013036881

PATIENT
  Age: 65 Year
  Sex: Male
  Weight: 128 kg

DRUGS (27)
  1. EPOGEN [Suspect]
     Indication: NEPHROGENIC ANAEMIA
     Dosage: 10000 UNIT, 3 TIMES/WK
     Route: 042
     Dates: start: 20110222
  2. NEPHROCAPS                         /01801401/ [Concomitant]
     Dosage: 30 UNK, QD
     Route: 048
  3. FUROSEMIDE [Concomitant]
     Dosage: 40 MG, QD
     Route: 048
  4. SINGULAIR [Concomitant]
     Dosage: 10 MG, QD
     Route: 048
  5. XALATAN [Concomitant]
     Dosage: 0.005 %, QD
     Route: 065
  6. VITAMIN D2 [Concomitant]
     Dosage: 1.25 MG, 2 TIMES/WK
     Route: 048
  7. ALBUTEROL                          /00139501/ [Concomitant]
     Dosage: 1 PUFF IN 4 TIMES PER DAY
     Route: 065
  8. TIMOLOL [Concomitant]
     Dosage: 0.5 %, QD
     Route: 065
  9. OYST-CAL [Concomitant]
     Dosage: 500 MG, BID
     Route: 048
  10. BISACODYL [Concomitant]
     Dosage: 5 MG, QD
     Route: 048
  11. ASPIRIN [Concomitant]
     Dosage: 81 MG, QD
     Route: 048
  12. CILOSTAZOL [Concomitant]
     Dosage: 100 MG, BID
     Route: 048
  13. FINASTERIDE [Concomitant]
     Dosage: 5 MG, QD
     Route: 048
  14. DUONEB [Concomitant]
     Dosage: UNK UNK, BID
     Route: 048
  15. SPIRIVA [Concomitant]
     Dosage: 18 MUG, QD
     Route: 048
  16. SYMBICORT [Concomitant]
     Dosage: 4.5 MUG, BID 2 PUFFS
     Route: 048
  17. TAMSULOSIN HCL [Concomitant]
     Dosage: 0.4 MUG, QD
     Route: 048
  18. ROBITUSSIN DM [Concomitant]
     Dosage: 1 TSP, TID
     Route: 048
  19. ZYPREXA [Concomitant]
     Dosage: 10 MG, QD
     Route: 048
  20. DEPAKOTE [Concomitant]
     Dosage: 1000 MG, BID
     Route: 048
  21. LEVOTHYROXINE [Concomitant]
     Dosage: 225 MG, QD
     Route: 048
  22. OMEPRAZOLE [Concomitant]
     Dosage: 40 MG, QD
     Route: 065
  23. HALOPERIDOL [Concomitant]
     Dosage: 10 MG, 4 TIMES PER DAY
     Route: 048
  24. PROZAC [Concomitant]
     Dosage: 20 MG, QD
     Route: 048
  25. COLACE [Concomitant]
     Dosage: 100 MG, BID
     Route: 048
  26. LORAZEPAM [Concomitant]
     Dosage: 0.5 MG,TUES-THURS SAT QID AND MON-WED-FRI TID
     Route: 048
  27. PHOSLO [Concomitant]
     Dosage: 667 MG, QD
     Route: 048

REACTIONS (3)
  - Blood iron abnormal [Unknown]
  - Transferrin abnormal [Unknown]
  - Drug effect decreased [Not Recovered/Not Resolved]
